FAERS Safety Report 20724606 (Version 1)
Quarter: 2022Q2

REPORT INFORMATION
  Report Type: Spontaneous
  Country: NG (occurrence: None)
  Receive Date: 20220418
  Receipt Date: 20220418
  Transmission Date: 20220720
  Serious: Yes (Other)
  Sender: FDA-Public Use
  Company Number: None

PATIENT
  Age: 25 Year
  Sex: Male
  Weight: 94 kg

DRUGS (1)
  1. MINOXIDIL [Suspect]
     Active Substance: MINOXIDIL
     Indication: Alopecia
     Dosage: FREQUENCY : TWICE A DAY; APPLY?
     Route: 061

REACTIONS (3)
  - Loss of libido [None]
  - Erectile dysfunction [None]
  - Feeling abnormal [None]

NARRATIVE: CASE EVENT DATE: 20210117
